FAERS Safety Report 5168207-6 (Version None)
Quarter: 2006Q4

REPORT INFORMATION
  Report Type: 
  Country: None (occurrence: None)
  Receive Date: 20061130
  Receipt Date: 20061117
  Transmission Date: 20070319
  Serious: Yes (Hospitalization)
  Sender: FDA-Public Use
  Company Number: 2006AD000090

PATIENT
  Age: 31 Year
  Sex: Female

DRUGS (2)
  1. KEFLEX [Suspect]
     Indication: CELLULITIS
     Dates: start: 20060902, end: 20060901
  2. REBIF [Concomitant]

REACTIONS (3)
  - ARTHRALGIA [None]
  - DRUG HYPERSENSITIVITY [None]
  - PYREXIA [None]
